FAERS Safety Report 24349262 (Version 1)
Quarter: 2024Q3

REPORT INFORMATION
  Report Type: Report from Study
  Country: CA (occurrence: CA)
  Receive Date: 20240923
  Receipt Date: 20240923
  Transmission Date: 20241017
  Serious: Yes (Death, Hospitalization)
  Sender: CSL BEHRING
  Company Number: CA-BEH-2024168737

PATIENT
  Age: 68 Year
  Sex: Male
  Weight: 58.7 kg

DRUGS (9)
  1. HIZENTRA [Suspect]
     Active Substance: HUMAN IMMUNOGLOBULIN G
     Indication: Secondary immunodeficiency
     Dosage: 8 GRAM, QW
     Route: 065
  2. HIZENTRA [Suspect]
     Active Substance: HUMAN IMMUNOGLOBULIN G
     Dosage: UNK
     Route: 058
  3. ASPIRIN [Concomitant]
     Active Substance: ASPIRIN
  4. CALCIUM [Concomitant]
     Active Substance: CALCIUM
  5. METOPROLOL [Concomitant]
     Active Substance: METOPROLOL
  6. VITAMIN B [Concomitant]
     Active Substance: VITAMIN B
  7. DEXILANT [Concomitant]
     Active Substance: DEXLANSOPRAZOLE
  8. METHYLPHENIDATE [Concomitant]
     Active Substance: METHYLPHENIDATE
  9. TESTOSTERONE [Concomitant]
     Active Substance: TESTOSTERONE

REACTIONS (12)
  - Death [Fatal]
  - Pneumonia [Unknown]
  - Pulmonary embolism [Unknown]
  - Pneumonia [Unknown]
  - Ill-defined disorder [Unknown]
  - Asthenia [Unknown]
  - Illness [Unknown]
  - Decreased appetite [Unknown]
  - Weight decreased [Unknown]
  - Dyspnoea [Unknown]
  - Product use complaint [Unknown]
  - Swelling [Recovered/Resolved]

NARRATIVE: CASE EVENT DATE: 20230101
